FAERS Safety Report 7716854-7 (Version None)
Quarter: 2011Q3

REPORT INFORMATION
  Report Type: 
  Country: None (occurrence: None)
  Receive Date: 20110829
  Receipt Date: 20110819
  Transmission Date: 20111222
  Serious: Yes (Death)
  Sender: FDA-Public Use
  Company Number: US-MILLENNIUM PHARMACEUTICALS, INC.-2011-03746

PATIENT

DRUGS (1)
  1. VELCADE [Suspect]
     Indication: CHRONIC MYELOID LEUKAEMIA
     Dosage: 1.5 MG/M2, CYCLIC
     Route: 040

REACTIONS (1)
  - DEATH [None]
